FAERS Safety Report 7401023-0 (Version None)
Quarter: 2011Q2

REPORT INFORMATION
  Report Type: 
  Country: None (occurrence: None)
  Receive Date: 20110407
  Receipt Date: 20110404
  Transmission Date: 20111010
  Serious: Yes (Other)
  Sender: FDA-Public Use
  Company Number: US-PFIZER INC-2010116648

PATIENT
  Sex: Female

DRUGS (13)
  1. NEURONTIN [Suspect]
     Dosage: UNK
  2. LEVOTHROID [Interacting]
     Dosage: UNK
  3. SEROQUEL [Interacting]
     Dosage: UNK
  4. SINGULAIR [Interacting]
     Dosage: UNK
  5. FLEXERIL [Interacting]
     Dosage: UNK
  6. FLOVENT [Interacting]
     Dosage: UNK
  7. TRAMADOL [Interacting]
     Dosage: UNK
  8. BUSPAR [Interacting]
     Dosage: UNK
  9. LITHIUM [Interacting]
     Dosage: UNK
  10. NEXIUM [Interacting]
     Dosage: UNK
  11. ATROVENT [Interacting]
     Dosage: UNK
  12. EFFEXOR XR [Interacting]
     Dosage: UNK
  13. ABILIFY [Interacting]
     Dosage: UNK

REACTIONS (4)
  - HYPOTHYROIDISM [None]
  - DRUG EFFECT DECREASED [None]
  - ADVERSE EVENT [None]
  - DRUG INTERACTION [None]
